FAERS Safety Report 11019973 (Version 2)
Quarter: 2015Q2

REPORT INFORMATION
  Report Type: Spontaneous
  Country: US (occurrence: US)
  Receive Date: 20150412
  Receipt Date: 20150525
  Transmission Date: 20150821
  Serious: Yes (Other)
  Sender: FDA-Public Use
  Company Number: US-JNJFOC-20100100423

PATIENT
  Age: 45 Year
  Sex: Male

DRUGS (1)
  1. LEVAQUIN [Suspect]
     Active Substance: LEVOFLOXACIN
     Indication: SINUSITIS
     Route: 048
     Dates: start: 20070319, end: 20071201

REACTIONS (2)
  - Tendon rupture [Unknown]
  - Tendon disorder [Unknown]

NARRATIVE: CASE EVENT DATE: 200801
